FAERS Safety Report 18239973 (Version 1)
Quarter: 2020Q3

REPORT INFORMATION
  Report Type: Spontaneous
  Country: US (occurrence: US)
  Receive Date: 20200908
  Receipt Date: 20200908
  Transmission Date: 20201103
  Serious: Yes (Other)
  Sender: FDA-Public Use
  Company Number: US-SA-2020SA240747

PATIENT

DRUGS (10)
  1. PROVIGIL [Concomitant]
     Active Substance: MODAFINIL
  2. BACLOFEN. [Concomitant]
     Active Substance: BACLOFEN
  3. LEXAPRO [Concomitant]
     Active Substance: ESCITALOPRAM OXALATE
  4. HYDROCODONE BITARTRATE AND ACETAMINOPHEN [Concomitant]
     Active Substance: ACETAMINOPHEN\HYDROCODONE BITARTRATE
  5. XANAX [Concomitant]
     Active Substance: ALPRAZOLAM
  6. TREXIMET [Concomitant]
     Active Substance: NAPROXEN SODIUM\SUMATRIPTAN SUCCINATE
  7. AUBAGIO [Suspect]
     Active Substance: TERIFLUNOMIDE
     Indication: MULTIPLE SCLEROSIS
     Dosage: 14 MG, QD
     Route: 048
     Dates: start: 2015
  8. PRISTIQ EXTENDED?RELEASE [Concomitant]
     Active Substance: DESVENLAFAXINE SUCCINATE
     Dosage: 1 DF, QD
  9. NEURONTIN [Concomitant]
     Active Substance: GABAPENTIN
  10. ADDERALL [Concomitant]
     Active Substance: AMPHETAMINE ASPARTATE\AMPHETAMINE SULFATE\DEXTROAMPHETAMINE SACCHARATE\DEXTROAMPHETAMINE SULFATE

REACTIONS (11)
  - Depression [Unknown]
  - Vitamin D deficiency [Unknown]
  - Blood creatine phosphokinase abnormal [Unknown]
  - Eye pain [Unknown]
  - Discomfort [Unknown]
  - Musculoskeletal discomfort [Unknown]
  - Vitamin B12 deficiency [Unknown]
  - Loss of consciousness [Unknown]
  - Fall [Unknown]
  - Anaemia [Unknown]
  - Dizziness [Unknown]

NARRATIVE: CASE EVENT DATE: 2020
